FAERS Safety Report 23083260 (Version 1)
Quarter: 2023Q4

REPORT INFORMATION
  Report Type: Spontaneous
  Country: US (occurrence: None)
  Receive Date: 20231017
  Receipt Date: 20231017
  Transmission Date: 20240110
  Serious: Yes (Hospitalization)
  Sender: FDA-Public Use
  Company Number: None

PATIENT
  Age: 74 Year
  Sex: Male

DRUGS (1)
  1. PREDNISONE [Suspect]
     Active Substance: PREDNISONE
     Dates: start: 20221129

REACTIONS (5)
  - Hyperglycaemia [None]
  - Oedema [None]
  - Dizziness postural [None]
  - Cellulitis [None]
  - Peripheral swelling [None]

NARRATIVE: CASE EVENT DATE: 20230205
